FAERS Safety Report 13610135 (Version 3)
Quarter: 2017Q3

REPORT INFORMATION
  Report Type: Spontaneous
  Country: JP (occurrence: JP)
  Receive Date: 20170604
  Receipt Date: 20170713
  Transmission Date: 20171127
  Serious: Yes (Life-Threatening)
  Sender: FDA-Public Use
  Company Number: JP-ALSI-201700159

PATIENT
  Age: 78 Year
  Sex: Female
  Weight: 31.2 kg

DRUGS (2)
  1. OXYGEN. [Suspect]
     Active Substance: OXYGEN
     Route: 055
  2. OXYGEN 100% [Suspect]
     Active Substance: OXYGEN
     Indication: MYCOBACTERIUM AVIUM COMPLEX INFECTION
     Route: 055
     Dates: start: 20160629

REACTIONS (3)
  - Accidental overdose [Recovered/Resolved]
  - Device issue [None]
  - Hypercapnia [Recovered/Resolved]
